FAERS Safety Report 17134070 (Version 3)
Quarter: 2020Q1

REPORT INFORMATION
  Report Type: Spontaneous
  Country: US (occurrence: US)
  Receive Date: 20191210
  Receipt Date: 20200107
  Transmission Date: 20200409
  Serious: No
  Sender: FDA-Public Use
  Company Number: NVSC2019US063022

PATIENT
  Sex: Female

DRUGS (2)
  1. PIQRAY [Suspect]
     Active Substance: ALPELISIB
     Dosage: 150 MG, QD
     Route: 048
     Dates: start: 20191112
  2. PIQRAY [Suspect]
     Active Substance: ALPELISIB
     Indication: BREAST CANCER FEMALE
     Dosage: 300 MG, QD
     Route: 048

REACTIONS (4)
  - Nasopharyngitis [Unknown]
  - Head discomfort [Unknown]
  - Rash [Unknown]
  - Nasal mucosal discolouration [Unknown]
